FAERS Safety Report 24572984 (Version 3)
Quarter: 2024Q4

REPORT INFORMATION
  Report Type: Report from Study
  Country: CA (occurrence: CA)
  Receive Date: 20241101
  Receipt Date: 20241223
  Transmission Date: 20250114
  Serious: Yes (Other)
  Sender: DR REDDYS
  Company Number: CA-DRL-USA-CLI/CAN/24/0016065

PATIENT
  Age: 74 Year
  Sex: Female

DRUGS (2)
  1. ZOLEDRONIC ACID [Suspect]
     Active Substance: ZOLEDRONIC ACID
     Indication: Osteoporosis
     Dosage: DOSE: 5MG/100ML
     Route: 065
     Dates: start: 20210826
  2. ZOLEDRONIC ACID [Suspect]
     Active Substance: ZOLEDRONIC ACID
     Dosage: DOSE: 5MG/100ML
     Route: 065
     Dates: start: 20230321

REACTIONS (4)
  - Foot operation [Unknown]
  - Procedural pain [Unknown]
  - Influenza [Unknown]
  - Feeling abnormal [Unknown]
